FAERS Safety Report 5788779-8 (Version None)
Quarter: 2008Q2

REPORT INFORMATION
  Report Type: 
  Country: None (occurrence: None)
  Receive Date: 20080624
  Receipt Date: 20080617
  Transmission Date: 20081010
  Serious: Yes (Life-Threatening, Hospitalization)
  Sender: FDA-Public Use
  Company Number: 056-C5013-07071627

PATIENT
  Age: 66 Year
  Sex: Male
  Weight: 69 kg

DRUGS (8)
  1. CC-5013 (LENALIDOMIDE) (CAPSULES) [Suspect]
     Indication: MULTIPLE MYELOMA
     Dosage: 25 MG, DAILY, 21 DAYS/28, ORAL; 25 MG, 1 IN 1 D, ORAL
     Route: 048
     Dates: start: 20070515, end: 20070605
  2. CC-5013 (LENALIDOMIDE) (CAPSULES) [Suspect]
     Indication: MULTIPLE MYELOMA
     Dosage: 25 MG, DAILY, 21 DAYS/28, ORAL; 25 MG, 1 IN 1 D, ORAL
     Route: 048
     Dates: start: 20070620, end: 20070703
  3. DEXAMETHASONE TAB [Concomitant]
  4. ARANESP [Concomitant]
  5. RIVOTRIL (CLONAZEPAM) (DROPS) [Concomitant]
  6. BACTRIM FORTE (BACTRIM) [Concomitant]
  7. FERRO-GRAD (FERROUS SULFATE) [Concomitant]
  8. ASCORBIC ACID [Concomitant]

REACTIONS (5)
  - ASTHENIA [None]
  - ATRIOVENTRICULAR BLOCK COMPLETE [None]
  - MYOCARDIAL INFARCTION [None]
  - NECROSIS [None]
  - VERTIGO [None]
